FAERS Safety Report 21175312 (Version 3)
Quarter: 2022Q4

REPORT INFORMATION
  Report Type: Report from Study
  Country: US (occurrence: US)
  Receive Date: 20220805
  Receipt Date: 20221004
  Transmission Date: 20230113
  Serious: Yes (Hospitalization, Other)
  Sender: FDA-Public Use
  Company Number: US-ABBVIE-22K-163-4492575-00

PATIENT
  Sex: Female

DRUGS (2)
  1. VENCLEXTA [Suspect]
     Active Substance: VENETOCLAX
     Indication: Myelodysplastic syndrome
     Dosage: TWO TABLETS EVERY MORNING.
     Route: 048
     Dates: end: 202207
  2. VENCLEXTA [Suspect]
     Active Substance: VENETOCLAX
     Indication: Myelodysplastic syndrome
     Dosage: TWO TABLETS EVERY MORNING.
     Route: 048
     Dates: start: 2022

REACTIONS (5)
  - Biliary obstruction [Recovering/Resolving]
  - Cerebrovascular accident [Recovered/Resolved]
  - Infection [Unknown]
  - Sepsis [Recovered/Resolved]
  - Cholelithiasis [Recovered/Resolved]

NARRATIVE: CASE EVENT DATE: 20220101
